FAERS Safety Report 21434442 (Version 2)
Quarter: 2022Q4

REPORT INFORMATION
  Report Type: Spontaneous
  Country: US (occurrence: US)
  Receive Date: 20221010
  Receipt Date: 20221114
  Transmission Date: 20230112
  Serious: No
  Sender: FDA-Public Use
  Company Number: US-ORGANON-O2209USA002076

PATIENT
  Age: 17 Year
  Sex: Female
  Weight: 123.36 kg

DRUGS (1)
  1. NEXPLANON [Suspect]
     Active Substance: ETONOGESTREL
     Indication: Contraception
     Dosage: 68 MG EVERY 3 YEARS; LEFT UPPER ARM
     Route: 059
     Dates: start: 20191114, end: 20220922

REACTIONS (3)
  - Device breakage [Recovered/Resolved with Sequelae]
  - Complication of device removal [Recovered/Resolved with Sequelae]
  - Implant site fibrosis [Unknown]

NARRATIVE: CASE EVENT DATE: 20220922
